FAERS Safety Report 21666699 (Version 3)
Quarter: 2023Q1

REPORT INFORMATION
  Report Type: Spontaneous
  Country: US (occurrence: US)
  Receive Date: 20221201
  Receipt Date: 20230320
  Transmission Date: 20230418
  Serious: Yes (Other)
  Sender: FDA-Public Use
  Company Number: US-sptaiwan-2022SUN003311

PATIENT
  Sex: Female

DRUGS (1)
  1. LATUDA [Suspect]
     Active Substance: LURASIDONE HYDROCHLORIDE
     Indication: Bipolar disorder
     Dosage: 80 MG, QD
     Route: 048

REACTIONS (5)
  - Hallucination, auditory [Unknown]
  - Self-injurious ideation [Unknown]
  - Visual impairment [Unknown]
  - Fall [Unknown]
  - Therapy interrupted [Unknown]
